FAERS Safety Report 17673613 (Version 1)
Quarter: 2020Q2

REPORT INFORMATION
  Report Type: Spontaneous
  Country: CN (occurrence: CN)
  Receive Date: 20200416
  Receipt Date: 20200416
  Transmission Date: 20200714
  Serious: Yes (Other)
  Sender: FDA-Public Use
  Company Number: CN-SUN PHARMACEUTICAL INDUSTRIES LTD-2020R1-243784

PATIENT
  Age: 87 Year
  Sex: Female

DRUGS (7)
  1. METHYLCOBALAMIN. [Concomitant]
     Active Substance: METHYLCOBALAMIN
     Indication: DIABETIC NEUROPATHY
     Dosage: 1.5 MILLIGRAM, DAILY
     Route: 065
  2. CALCIUM CARBONATE D3 [Concomitant]
     Indication: OSTEOPOROSIS
     Dosage: 600 MILLIGRAM, DAILY
     Route: 065
  3. SIMVASTATIN. [Concomitant]
     Active Substance: SIMVASTATIN
     Indication: PLAQUE SHIFT
     Dosage: 20 MILLIGRAM, DAILY
     Route: 065
  4. GLIMEPIRIDE. [Concomitant]
     Active Substance: GLIMEPIRIDE
     Indication: TYPE 2 DIABETES MELLITUS
     Dosage: 4 MILLIGRAM, DAILY
     Route: 065
  5. AMLODIPINE BESYLATE. [Concomitant]
     Active Substance: AMLODIPINE BESYLATE
     Indication: HYPERTENSION
     Dosage: 5 MILLIGRAM, DAILY
     Route: 065
  6. DONEPEZIL. [Suspect]
     Active Substance: DONEPEZIL
     Indication: DEMENTIA ALZHEIMER^S TYPE
     Dosage: 5 MILLIGRAM, DAILY
  7. ASPIRIN. [Concomitant]
     Active Substance: ASPIRIN
     Indication: PLAQUE SHIFT
     Dosage: 100 MILLIGRAM, DAILY
     Route: 065

REACTIONS (1)
  - Extrapyramidal disorder [Recovered/Resolved]
